FAERS Safety Report 4620387-4 (Version None)
Quarter: 2005Q1

REPORT INFORMATION
  Report Type: 
  Country: None (occurrence: None)
  Receive Date: 20050321
  Receipt Date: 20050321
  Transmission Date: 20050727
  Serious: No
  Sender: FDA-Public Use
  Company Number: None

PATIENT
  Age: 68 Year
  Sex: Female
  Weight: 72.5755 kg

DRUGS (6)
  1. VERSED [Suspect]
     Indication: BARRETT'S OESOPHAGUS
     Dates: start: 20050317, end: 20050317
  2. VERSED [Suspect]
     Indication: ENDOSCOPY
     Dates: start: 20050317, end: 20050317
  3. DIPRIVAN [Suspect]
     Indication: BARRETT'S OESOPHAGUS
     Dates: start: 20050317, end: 20050317
  4. DIPRIVAN [Suspect]
     Indication: ENDOSCOPY
     Dates: start: 20050317, end: 20050317
  5. FENTANYL [Suspect]
     Indication: BARRETT'S OESOPHAGUS
     Dates: start: 20050317, end: 20050317
  6. FENTANYL [Suspect]
     Indication: ENDOSCOPY
     Dates: start: 20050317, end: 20050317

REACTIONS (1)
  - RASH MACULO-PAPULAR [None]
